FAERS Safety Report 5856117-8 (Version None)
Quarter: 2008Q3

REPORT INFORMATION
  Report Type: 
  Country: None (occurrence: None)
  Receive Date: 20080825
  Receipt Date: 20080821
  Transmission Date: 20090109
  Serious: Yes (Hospitalization)
  Sender: FDA-Public Use
  Company Number: DE-ABBOTT-07P-062-0369327-00

PATIENT
  Sex: Female

DRUGS (5)
  1. HUMIRA [Suspect]
     Indication: RHEUMATOID ARTHRITIS
     Route: 058
     Dates: start: 20031013, end: 20070412
  2. LEFLUNOMIDE [Suspect]
     Indication: RHEUMATOID ARTHRITIS
     Route: 048
     Dates: start: 20010503, end: 20070423
  3. RITUXIMAB [Suspect]
     Indication: RHEUMATOID ARTHRITIS
     Route: 042
     Dates: start: 20061101, end: 20061101
  4. RITUXIMAB [Suspect]
     Route: 042
     Dates: start: 20061121, end: 20061121
  5. PANTOPRAZOLE [Concomitant]
     Indication: DRUG USE FOR UNKNOWN INDICATION
     Route: 048

REACTIONS (6)
  - ANGIOTENSIN CONVERTING ENZYME INCREASED [None]
  - BACTERIAL DNA TEST POSITIVE [None]
  - CHILLS [None]
  - DISSEMINATED TUBERCULOSIS [None]
  - HEPATIC ENZYME INCREASED [None]
  - PYREXIA [None]
